FAERS Safety Report 10268376 (Version 2)
Quarter: 2014Q3

REPORT INFORMATION
  Report Type: Spontaneous
  Country: DE (occurrence: DE)
  Receive Date: 20140630
  Receipt Date: 20140731
  Transmission Date: 20150326
  Serious: Yes (Other)
  Sender: FDA-Public Use
  Company Number: DE-AMGEN-DEUSP2014048111

PATIENT
  Age: 58 Year
  Sex: Female
  Weight: 57 kg

DRUGS (6)
  1. VECTIBIX [Suspect]
     Active Substance: PANITUMUMAB
     Indication: SMALL INTESTINE CARCINOMA
     Dosage: 342 PORT, 14 DAYS
     Route: 065
     Dates: start: 201305, end: 20140715
  2. IRINOTECAN [Concomitant]
     Active Substance: IRINOTECAN
     Indication: SMALL INTESTINE CARCINOMA
     Dosage: UNK
     Dates: start: 201208
  3. OXALIPLATIN. [Concomitant]
     Active Substance: OXALIPLATIN
     Indication: SMALL INTESTINE CARCINOMA
     Dosage: UNK
     Dates: start: 201305
  4. CETUXIMAB [Concomitant]
     Active Substance: CETUXIMAB
     Indication: SMALL INTESTINE CARCINOMA
     Dosage: UNK
     Dates: start: 201208
  5. 5-FLUOROURACIL                     /00098801/ [Concomitant]
     Active Substance: FLUOROURACIL
     Indication: SMALL INTESTINE CARCINOMA
     Dosage: 1380 MG, 14 DAYS
     Route: 042
     Dates: start: 201208, end: 20140717
  6. FOLINIC ACID [Concomitant]
     Active Substance: LEUCOVORIN
     Indication: SMALL INTESTINE CARCINOMA
     Dosage: 256 MG, 14 DAYS
     Route: 042
     Dates: start: 201208, end: 20140717

REACTIONS (2)
  - Supraventricular tachycardia [Recovered/Resolved]
  - Atrial tachycardia [Unknown]

NARRATIVE: CASE EVENT DATE: 20140623
